FAERS Safety Report 5141479-X (Version None)
Quarter: 2006Q4

REPORT INFORMATION
  Report Type: 
  Country: None (occurrence: None)
  Receive Date: 20061101
  Receipt Date: 20060929
  Transmission Date: 20070319
  Serious: Yes (Hospitalization)
  Sender: FDA-Public Use
  Company Number: 2006AP04615

PATIENT
  Age: 68 Year
  Sex: Male
  Weight: 65 kg

DRUGS (15)
  1. DIPRIVAN [Suspect]
     Indication: INDUCTION OF ANAESTHESIA
     Route: 042
     Dates: start: 20051114, end: 20051114
  2. DIPRIVAN [Suspect]
     Indication: MAINTENANCE OF ANAESTHESIA
     Route: 042
     Dates: start: 20051114, end: 20051114
  3. DIPRIVAN [Suspect]
     Dosage: 5-6 MG/KG/HR
     Route: 065
     Dates: start: 20051114, end: 20051114
  4. DIPRIVAN [Suspect]
     Dosage: 5-6 MG/KG/HR
     Route: 065
     Dates: start: 20051114, end: 20051114
  5. DIPRIVAN [Suspect]
     Route: 065
     Dates: start: 20051114, end: 20051114
  6. DIPRIVAN [Suspect]
     Route: 065
     Dates: start: 20051114, end: 20051114
  7. ANAPEINE [Suspect]
     Indication: EPIDURAL ANAESTHESIA
     Route: 008
     Dates: start: 20051114, end: 20051114
  8. ATROPINE SULFATE [Suspect]
     Indication: PREMEDICATION
     Route: 030
     Dates: start: 20051114, end: 20051114
  9. VAGOSTIGMIN [Suspect]
     Dates: start: 20051114, end: 20051114
  10. HYDROXYZINE HYDROCHLORIDE [Concomitant]
     Indication: PREMEDICATION
     Route: 030
     Dates: start: 20051114, end: 20051114
  11. ACETATE [Concomitant]
     Route: 041
  12. MIDAZOLAM [Concomitant]
     Route: 042
     Dates: start: 20051114, end: 20051114
  13. OXYGEN [Concomitant]
     Route: 055
     Dates: start: 20051114, end: 20051114
  14. VECURONIUM BROMIDE [Concomitant]
     Indication: INDUCTION OF ANAESTHESIA
     Dates: start: 20051114, end: 20051114
  15. MORPHINE [Concomitant]
     Dates: start: 20051114, end: 20051114

REACTIONS (4)
  - BLOOD CREATINE PHOSPHOKINASE INCREASED [None]
  - BLOOD PRESSURE INCREASED [None]
  - HYPERTHERMIA MALIGNANT [None]
  - MYOGLOBINURIA [None]
